FAERS Safety Report 22232304 (Version 1)
Quarter: 2023Q2

REPORT INFORMATION
  Report Type: Spontaneous
  Country: US (occurrence: None)
  Receive Date: 20230420
  Receipt Date: 20230420
  Transmission Date: 20230722
  Serious: No
  Sender: FDA-Public Use
  Company Number: US-ROCHE-3053120

PATIENT
  Sex: Male

DRUGS (1)
  1. ESBRIET [Suspect]
     Active Substance: PIRFENIDONE
     Indication: Idiopathic pulmonary fibrosis
     Dosage: TAKE 1 TABLET 267 MG THREE TIMES DAILY FOR 1 WEEK, 2 TABLETS THREE TIMES DAILY FOR WEEK, 3 TABLETS T
     Route: 048
     Dates: start: 20220210

REACTIONS (2)
  - Product dose omission in error [Unknown]
  - No adverse event [Unknown]
